FAERS Safety Report 4615992-5 (Version None)
Quarter: 2005Q1

REPORT INFORMATION
  Report Type: 
  Country: None (occurrence: None)
  Receive Date: 20050323
  Receipt Date: 20050311
  Transmission Date: 20050727
  Serious: Yes (Hospitalization)
  Sender: FDA-Public Use
  Company Number: FR-JNJFOC-20050303509

PATIENT
  Age: 55 Year
  Sex: Male
  Weight: 68 kg

DRUGS (6)
  1. REMICADE [Suspect]
     Indication: RHEUMATOID ARTHRITIS
     Dosage: 16 DOSES
     Route: 042
  2. NOVATREX [Concomitant]
     Indication: RHEUMATOID ARTHRITIS
  3. VIOXX [Concomitant]
     Indication: RHEUMATOID ARTHRITIS
  4. DI-ANTALVIC [Concomitant]
  5. DI-ANTALVIC [Concomitant]
     Indication: RHEUMATOID ARTHRITIS
  6. SPECIAFOLDINE [Concomitant]
     Indication: RHEUMATOID ARTHRITIS

REACTIONS (2)
  - ATRIAL FLUTTER [None]
  - TACHYCARDIA [None]
